FAERS Safety Report 15263183 (Version 1)
Quarter: 2018Q3

REPORT INFORMATION
  Report Type: Report from Study
  Country: ES (occurrence: ES)
  Receive Date: 20180810
  Receipt Date: 20180810
  Transmission Date: 20181010
  Serious: Yes (Hospitalization)
  Sender: FDA-Public Use
  Company Number: ES-TEVA-2018-ES-936793

PATIENT
  Age: 48 Year
  Sex: Male

DRUGS (10)
  1. FOLINIC ACID [Suspect]
     Active Substance: LEUCOVORIN
     Indication: RECTAL CANCER
     Dates: start: 20170630, end: 20170630
  2. IRINOTECAN [Suspect]
     Active Substance: IRINOTECAN
     Indication: RECTAL CANCER
     Route: 042
     Dates: start: 20170724, end: 20170724
  3. 5?FU [Suspect]
     Active Substance: FLUOROURACIL
     Indication: RECTAL CANCER
     Route: 040
     Dates: start: 20170630, end: 20170630
  4. AFLIBERCEPT [Suspect]
     Active Substance: AFLIBERCEPT
     Indication: RECTAL CANCER
     Route: 042
     Dates: start: 20170630, end: 20170630
  5. AFLIBERCEPT [Suspect]
     Active Substance: AFLIBERCEPT
     Route: 042
     Dates: start: 20170724, end: 20170724
  6. FOLINIC ACID [Suspect]
     Active Substance: LEUCOVORIN
     Route: 042
     Dates: start: 20180724, end: 20180724
  7. 5?FU [Suspect]
     Active Substance: FLUOROURACIL
     Route: 040
     Dates: start: 20170724, end: 20170724
  8. IRINOTECAN [Suspect]
     Active Substance: IRINOTECAN
     Route: 042
     Dates: start: 20170630, end: 20170630
  9. 5?FU [Suspect]
     Active Substance: FLUOROURACIL
     Dosage: 3859.2 MILLIGRAM DAILY;
     Route: 042
     Dates: start: 20170630, end: 20170630
  10. 5?FU [Suspect]
     Active Substance: FLUOROURACIL
     Route: 042
     Dates: start: 20170724, end: 20170724

REACTIONS (1)
  - Acute kidney injury [Recovered/Resolved]

NARRATIVE: CASE EVENT DATE: 20170731
